FAERS Safety Report 18364940 (Version 1)
Quarter: 2020Q4

REPORT INFORMATION
  Report Type: Spontaneous
  Country: FR (occurrence: FR)
  Receive Date: 20201009
  Receipt Date: 20201009
  Transmission Date: 20210114
  Serious: Yes (Other)
  Sender: FDA-Public Use
  Company Number: FR-ASTELLAS-2020US034233

PATIENT
  Age: 3 Year
  Sex: Male

DRUGS (1)
  1. MODIGRAF [Suspect]
     Active Substance: TACROLIMUS
     Indication: LIVER TRANSPLANT
     Dosage: 0.3 MG, TWICE DAILY (0.3 MG IN THE MORNING AND 0.3 MG IN THE EVENING)
     Route: 065
     Dates: start: 201712

REACTIONS (2)
  - Wrong technique in product usage process [Unknown]
  - Complications of transplanted liver [Unknown]
